FAERS Safety Report 22322876 (Version 1)
Quarter: 2023Q2

REPORT INFORMATION
  Report Type: Report from Study
  Country: DE (occurrence: DE)
  Receive Date: 20230516
  Receipt Date: 20230516
  Transmission Date: 20230721
  Serious: Yes (Hospitalization)
  Sender: FDA-Public Use
  Company Number: DE-ABBVIE-4764070

PATIENT
  Age: 54 Year
  Sex: Female

DRUGS (2)
  1. RINVOQ [Suspect]
     Active Substance: UPADACITINIB
     Indication: Rheumatoid arthritis
     Route: 048
  2. METHOTREXATE [Concomitant]
     Active Substance: METHOTREXATE
     Indication: Product used for unknown indication

REACTIONS (4)
  - Peripheral sensory neuropathy [Recovered/Resolved]
  - Spondylitis [Recovered/Resolved]
  - Radiculopathy [Recovered/Resolved]
  - Blood immunoglobulin G abnormal [Recovered/Resolved]

NARRATIVE: CASE EVENT DATE: 20230207
